FAERS Safety Report 9414748 (Version 1)
Quarter: 2013Q3

REPORT INFORMATION
  Report Type: Spontaneous
  Country: US (occurrence: None)
  Receive Date: 20130718
  Receipt Date: 20130718
  Transmission Date: 20140515
  Serious: Yes (Other)
  Sender: FDA-Public Use
  Company Number: 2515444201300005

PATIENT
  Sex: Male

DRUGS (2)
  1. BANANA BOAT ULTRA MIST SPORT SUNSCREEN SPRAY SPF 30 [Suspect]
     Indication: PROPHYLAXIS
     Dosage: TOPICAL NO DOSAGE LIMITS
     Dates: start: 20120525, end: 20120525
  2. BANANA BOAT ULTRA MIST SPORT SUNSCREEN SPRAY SPF 30 [Suspect]
     Indication: SUNBURN
     Dosage: TOPICAL NO DOSAGE LIMITS
     Dates: start: 20120525, end: 20120525

REACTIONS (1)
  - Accident [None]
